FAERS Safety Report 15042705 (Version 1)
Quarter: 2018Q2

REPORT INFORMATION
  Report Type: Spontaneous
  Country: FR (occurrence: FR)
  Receive Date: 20180621
  Receipt Date: 20180621
  Transmission Date: 20180711
  Serious: Yes (Death)
  Sender: FDA-Public Use
  Company Number: FR-MYLANLABS-2018M1040900

PATIENT
  Age: 18 Year
  Sex: Female

DRUGS (3)
  1. JASMINELLE [Suspect]
     Active Substance: DROSPIRENONE
     Indication: ACNE
     Dosage: UNK
     Route: 048
     Dates: start: 20110725, end: 201207
  2. CYPROTERONE [Suspect]
     Active Substance: CYPROTERONE
     Indication: PRODUCT USED FOR UNKNOWN INDICATION
     Dosage: UNK
  3. DROSPIRENONE/ETHINYLESTRADIOL [Suspect]
     Active Substance: DROSPIRENONE\ETHINYL ESTRADIOL
     Indication: PRODUCT USED FOR UNKNOWN INDICATION
     Dosage: UNK

REACTIONS (12)
  - Pallor [Fatal]
  - Nausea [Fatal]
  - Tachypnoea [Fatal]
  - Poor quality sleep [Fatal]
  - Chest discomfort [Fatal]
  - Pulmonary embolism [Fatal]
  - Pain [Fatal]
  - Anxiety [Unknown]
  - Fatigue [Fatal]
  - Pulmonary infarction [Fatal]
  - Chest pain [Fatal]
  - Crying [Unknown]

NARRATIVE: CASE EVENT DATE: 20121029
